FAERS Safety Report 6445978-X (Version None)
Quarter: 2009Q4

REPORT INFORMATION
  Report Type: 
  Country: None (occurrence: None)
  Receive Date: 20091119
  Receipt Date: 20090512
  Transmission Date: 20100525
  Serious: No
  Sender: FDA-Public Use
  Company Number: A0783758A

PATIENT
  Age: 53 Year
  Sex: Female

DRUGS (8)
  1. BUPROPION HYDROCHLORIDE [Suspect]
     Dosage: 150MG TWICE PER DAY
     Route: 048
     Dates: start: 20060101
  2. LISINOPRIL [Concomitant]
  3. METOPROLOL SUCCINATE [Concomitant]
  4. METFORMIN HCL [Concomitant]
  5. GLYBURIDE [Concomitant]
  6. HYDROCHLOROTHIAZIDE [Concomitant]
  7. ZETIA [Concomitant]
  8. LIPITOR [Concomitant]

REACTIONS (5)
  - BRUXISM [None]
  - DRY MOUTH [None]
  - FEELING JITTERY [None]
  - INSOMNIA [None]
  - THERAPEUTIC RESPONSE UNEXPECTED [None]
